FAERS Safety Report 8637037 (Version 2)
Quarter: 2013Q2

REPORT INFORMATION
  Report Type: Report from Study
  Country: DE (occurrence: NO)
  Receive Date: 20120626
  Receipt Date: 20130518
  Transmission Date: 20140414
  Serious: Yes (Hospitalization)
  Sender: FDA-Public Use
  Company Number: DE-TEVA-344367GER

PATIENT
  Age: 51 Year
  Sex: Female
  Weight: 77 kg

DRUGS (9)
  1. MYOCET [Suspect]
     Indication: BREAST CANCER
     Route: 042
     Dates: start: 20120419
  2. PACLITAXEL [Suspect]
     Indication: BREAST CANCER
     Route: 042
     Dates: start: 20120419
  3. CARBOPLATIN [Suspect]
     Indication: BREAST CANCER
     Dosage: 176 AUC2 WEEKLY
     Route: 042
     Dates: start: 20120601
  4. BEVACIZUMAB [Suspect]
     Indication: BREAST CANCER
     Route: 042
     Dates: start: 20120510
  5. BISOPROLOL [Concomitant]
     Dosage: 5 MILLIGRAM DAILY;
     Dates: start: 2009
  6. KEVATRIL [Concomitant]
     Dosage: 1 MILLIGRAM DAILY;
     Dates: start: 20120419, end: 20120905
  7. FENISTIL [Concomitant]
     Dosage: 4 MILLIGRAM DAILY;
     Dates: start: 20120419, end: 20120905
  8. RANITIC [Concomitant]
     Dosage: 5 ML DAILY;
     Dates: start: 20120419, end: 20120905
  9. DEXAMETHASONE [Concomitant]
     Dosage: 8 MILLIGRAM DAILY;
     Dates: start: 20120419, end: 20120905

REACTIONS (1)
  - Abscess jaw [Recovered/Resolved]
